FAERS Safety Report 6993158-1 (Version None)
Quarter: 2010Q3

REPORT INFORMATION
  Report Type: 
  Country: None (occurrence: None)
  Receive Date: 20100917
  Receipt Date: 20100304
  Transmission Date: 20110219
  Serious: Yes (Other)
  Sender: FDA-Public Use
  Company Number: US-ASTRAZENECA-2007UW06363

PATIENT
  Age: 18713 Day
  Sex: Male

DRUGS (18)
  1. SEROQUEL [Suspect]
     Indication: BIPOLAR DISORDER
     Dosage: 500-700 MG, 25-300 MG DISPENSED
     Route: 048
     Dates: start: 20020605
  2. HYDROCODONE BITARTRATE AND ACETAMINOPHEN [Concomitant]
     Dosage: 7.5/500, 7.5/750, 10-500 DISPENSED
     Dates: start: 20000830
  3. PERCOCET [Concomitant]
     Dosage: 10/325 MG DISPENSED
     Dates: start: 20020410
  4. ALPRAZOLAM [Concomitant]
     Dosage: 0.5-1 MG DISPENSED
     Dates: start: 20000713
  5. PAXIL [Concomitant]
     Dosage: 40 MG, DISPENSED
     Dates: start: 20020605
  6. ALTACE [Concomitant]
     Dosage: 2.5-5 MG DISPENSED
     Dates: start: 20020606
  7. GABITRIL [Concomitant]
     Dosage: 4 MG DISPENSED
     Dates: start: 19991115
  8. ZOCOR [Concomitant]
     Dosage: 20 MG DISPENSED
     Dates: start: 20021105
  9. LEXAPRO [Concomitant]
     Dosage: 10-20 MG DISPENSED
     Dates: start: 20031107
  10. LORAZEPAM [Concomitant]
     Dosage: 1 MG DISPENSED
     Dates: start: 20040518
  11. VERAPAMIL [Concomitant]
     Dosage: 120-240 MG DISPENSED
     Dates: start: 20051230
  12. CITALOPRAM HYDROBROMIDE [Concomitant]
     Dosage: 40 MG DISPENSED
     Dates: start: 20051230
  13. METFORMIN [Concomitant]
     Dosage: 500 MG DISPENSED
     Dates: start: 20060105
  14. BENAZEPRIL HYDROCHLORIDE [Concomitant]
     Dosage: 40 MG DISPENSED
     Dates: start: 20051230
  15. NORVASC [Concomitant]
     Dosage: 10 MG DISPENSED
     Dates: start: 20060130
  16. METHOCARBAMOL [Concomitant]
     Dosage: 750 MG DISPENSED
     Dates: start: 20060612
  17. GEMFIBROZIL [Concomitant]
     Dosage: 600 MG DISPENSED
     Dates: start: 20061101
  18. LOVASTATIN [Concomitant]
     Dosage: 20 MG DISPENSED
     Dates: start: 20060105

REACTIONS (2)
  - DIABETES MELLITUS [None]
  - PANCREATITIS [None]
